FAERS Safety Report 5076005-7 (Version None)
Quarter: 2006Q3

REPORT INFORMATION
  Report Type: 
  Country: None (occurrence: None)
  Receive Date: 20060808
  Receipt Date: 20060808
  Transmission Date: 20061208
  Serious: Yes (Life-Threatening, Hospitalization)
  Sender: FDA-Public Use
  Company Number: None

PATIENT
  Sex: Male
  Weight: 170 kg

DRUGS (5)
  1. EFALIZUMAB 125 MG/ ML GENENTECH [Suspect]
     Indication: PSORIASIS
     Dosage: 170  MG WEEKLY  SQ
     Route: 058
     Dates: start: 20040526, end: 20060222
  2. NEURONTIN [Concomitant]
  3. AMBIEN [Concomitant]
  4. LASIX [Concomitant]
  5. VITAMIN B-12 [Concomitant]

REACTIONS (1)
  - PLATELET COUNT DECREASED [None]
